FAERS Safety Report 4452254-3 (Version None)
Quarter: 2004Q3

REPORT INFORMATION
  Report Type: 
  Country: None (occurrence: None)
  Receive Date: 20040917
  Receipt Date: 20040908
  Transmission Date: 20050211
  Serious: Yes (Hospitalization)
  Sender: FDA-Public Use
  Company Number: US-JNJFOC-20040902919

PATIENT
  Sex: Female

DRUGS (8)
  1. REMICADE [Suspect]
     Indication: VASCULITIS
     Route: 042
  2. METHOTREXATE [Concomitant]
     Indication: VASCULITIS
  3. MORFINE [Concomitant]
     Indication: PAIN
  4. PERCOCET [Concomitant]
  5. PERCOCET [Concomitant]
     Indication: PAIN
  6. ENBREL [Concomitant]
     Indication: VASCULITIS
  7. IMURAN [Concomitant]
     Indication: VASCULITIS
  8. PREDNISONE [Concomitant]
     Indication: VASCULITIS

REACTIONS (2)
  - HOSPITALISATION [None]
  - WEIGHT INCREASED [None]
